FAERS Safety Report 5862801-2 (Version None)
Quarter: 2008Q3

REPORT INFORMATION
  Report Type: 
  Country: None (occurrence: None)
  Receive Date: 20080828
  Receipt Date: 20080827
  Transmission Date: 20090109
  Serious: Yes (Hospitalization)
  Sender: FDA-Public Use
  Company Number: DK-BRISTOL-MYERS SQUIBB COMPANY-14291462

PATIENT
  Age: 34 Year
  Sex: Male
  Weight: 76 kg

DRUGS (3)
  1. ETOPOSIDE [Suspect]
     Indication: GERM CELL CANCER
     Dosage: FIRST ADMIN DATE 08FEB2008,CUMULATIVE DOSE 3960MG.
     Route: 042
     Dates: start: 20080421, end: 20080421
  2. CISPLATIN [Suspect]
     Indication: GERM CELL CANCER
     Dosage: FIRST ADMIN DATE 08FEB2008,CUMULATIVE DOSE 794.8MG.
     Route: 042
     Dates: start: 20080421, end: 20080421
  3. BLEOMYCIN SULFATE [Suspect]
     Indication: GERM CELL CANCER
     Dosage: FIRST ADMIN DATE 09FEB2008,CUMULATIVE DOSE 330MG.
     Route: 042
     Dates: start: 20080424, end: 20080424

REACTIONS (2)
  - DEEP VEIN THROMBOSIS [None]
  - RENAL DISORDER [None]
